FAERS Safety Report 5099496-4 (Version None)
Quarter: 2006Q3

REPORT INFORMATION
  Report Type: 
  Country: None (occurrence: None)
  Receive Date: 20060908
  Receipt Date: 20060830
  Transmission Date: 20061208
  Serious: Yes (Hospitalization)
  Sender: FDA-Public Use
  Company Number: PHHO2006JP14609

PATIENT
  Age: 65 Year
  Sex: Male
  Weight: 63 kg

DRUGS (5)
  1. DIOVAN [Suspect]
     Indication: HYPERTENSION
     Dosage: 40 MG, QD
     Route: 048
     Dates: start: 20030605
  2. ISOSORBIDE MONONITRATE [Concomitant]
     Indication: ANGINA PECTORIS
  3. LIPOVAS [Concomitant]
     Indication: HYPERCHOLESTEROLAEMIA
  4. HERBESSER [Concomitant]
     Indication: ANGINA PECTORIS
  5. 8-HOUR BAYER [Concomitant]
     Indication: ANGINA PECTORIS

REACTIONS (2)
  - ABDOMINAL PAIN [None]
  - PANCREATIC CARCINOMA [None]
